FAERS Safety Report 9512246 (Version 1)
Quarter: 2013Q1

REPORT INFORMATION
  Report Type: Spontaneous
  Country: US (occurrence: None)
  Receive Date: 20130305
  Receipt Date: 20130305
  Transmission Date: 20140127
  Serious: Yes (Hospitalization)
  Sender: FDA-Public Use
  Company Number: 163-21880-12051595

PATIENT
  Age: 74 Year
  Sex: Male

DRUGS (21)
  1. REVLIMID [Suspect]
     Indication: MONOCLONAL GAMMOPATHY
     Route: 048
     Dates: start: 20120201
  2. PLAVIX (CLOPIDOGREL SULFATE) [Concomitant]
  3. MAG-OX (MAGNESIUM OXIDE) [Concomitant]
  4. LANTUS (INSULIN GLARGINE) [Concomitant]
  5. VITAMIN C [Concomitant]
  6. IRON (IRON) [Concomitant]
  7. VITAMIN D3 (COLECALCIFEROL) [Concomitant]
  8. CILOSTAZOL (CILOSTAZOL) [Concomitant]
  9. NOVOLOG (INSULIN ASPART) [Concomitant]
  10. ECOTRIN (ACETYLSALICYLIC ACID) [Concomitant]
  11. METOPROLOL (METOPROLOL) [Concomitant]
  12. FUROSEMIDE (FUROSEMIDE) [Concomitant]
  13. DEXILANT (DEXLANSOPRAZOLE) [Concomitant]
  14. POTASSIUM (POTASSIUM) [Concomitant]
  15. VYTORIN (INEGY) [Concomitant]
  16. METOLAZONE (METOLAZONE) [Concomitant]
  17. VITAMIN B COMPLEX (B-KOMPLEX ^LECIVA^) [Concomitant]
  18. CLONAZEPAM (CLONAZEPAM) (CLONAZEPAM) [Concomitant]
  19. AMILORIDE (AMILORIDE) [Concomitant]
  20. OXYCODONE (OXYCODONE) [Concomitant]
  21. ALLOPURINOL [Concomitant]

REACTIONS (5)
  - Gastroenteritis viral [None]
  - Viral diarrhoea [None]
  - Nausea [None]
  - Constipation [None]
  - Somnolence [None]
